FAERS Safety Report 7643849-4 (Version None)
Quarter: 2011Q3

REPORT INFORMATION
  Report Type: 
  Country: None (occurrence: None)
  Receive Date: 20110729
  Receipt Date: 20100727
  Transmission Date: 20111222
  Serious: No
  Sender: FDA-Public Use
  Company Number: US-GLAXOSMITHKLINE-A0872534A

PATIENT
  Age: 50 Year
  Sex: Female

DRUGS (7)
  1. PLAQUENIL [Concomitant]
  2. IMITREX [Suspect]
     Indication: MIGRAINE
     Dosage: 100MG AS REQUIRED
     Route: 048
     Dates: start: 20100401, end: 20100501
  3. WELLBUTRIN [Concomitant]
  4. METOPROLOL TARTRATE [Concomitant]
  5. PREMARIN [Concomitant]
  6. TOPAMAX [Concomitant]
  7. FLEXERIL [Concomitant]

REACTIONS (2)
  - MYALGIA [None]
  - OROPHARYNGEAL PAIN [None]
